FAERS Safety Report 18649244 (Version 2)
Quarter: 2020Q4

REPORT INFORMATION
  Report Type: Spontaneous
  Country: US (occurrence: US)
  Receive Date: 20201222
  Receipt Date: 20201228
  Transmission Date: 20210114
  Serious: Yes (Disabling, Other)
  Sender: FDA-Public Use
  Company Number: US-PFIZER INC-2020502816

PATIENT
  Age: 48 Year
  Sex: Female
  Weight: 83.91 kg

DRUGS (2)
  1. COLESTIPOL HCL [Suspect]
     Active Substance: COLESTIPOL HYDROCHLORIDE
     Dosage: UNK, 1X/DAY (IN THE MORNING)
     Dates: start: 201905, end: 201910
  2. COLESTIPOL HCL [Suspect]
     Active Substance: COLESTIPOL HYDROCHLORIDE
     Indication: DIARRHOEA
     Dosage: UNK
     Dates: start: 2018

REACTIONS (15)
  - Rheumatoid arthritis [Unknown]
  - Fibromyalgia [Not Recovered/Not Resolved]
  - Joint swelling [Unknown]
  - Dysstasia [Unknown]
  - Hypoaesthesia [Unknown]
  - Gait inability [Recovering/Resolving]
  - Muscle discomfort [Recovering/Resolving]
  - Cerebrovascular accident [Unknown]
  - Off label use [Unknown]
  - Dementia [Recovering/Resolving]
  - Muscular dystrophy [Unknown]
  - Peripheral swelling [Unknown]
  - Asthenia [Unknown]
  - Multiple sclerosis [Unknown]
  - Disturbance in attention [Recovering/Resolving]

NARRATIVE: CASE EVENT DATE: 2018
